FAERS Safety Report 4626451-8 (Version None)
Quarter: 2005Q1

REPORT INFORMATION
  Report Type: 
  Country: None (occurrence: None)
  Receive Date: 20050330
  Receipt Date: 20050314
  Transmission Date: 20050727
  Serious: Yes (Other)
  Sender: FDA-Public Use
  Company Number: DSA_60466_2005

PATIENT
  Age: 62 Year
  Sex: Male
  Weight: 95.2554 kg

DRUGS (14)
  1. MYSOLINE [Suspect]
     Indication: CONVULSION
     Dosage: 250 MG BID PO
     Route: 048
     Dates: start: 19790801
  2. MYSOLINE [Suspect]
     Indication: CONVULSION
     Dosage: 500 MG TID PO
     Route: 048
     Dates: start: 20050206, end: 20050210
  3. MYSOLINE [Suspect]
     Indication: CONVULSION
     Dosage: 500 MG BID PO
     Route: 048
     Dates: start: 20050210
  4. THEOPHYLLINE [Suspect]
     Indication: BRONCHITIS
     Dosage: 600 MG QDAY PO
     Route: 048
     Dates: start: 20041001
  5. THEOPHYLLINE [Suspect]
     Indication: HYPERSENSITIVITY
     Dosage: 600 MG QDAY PO
     Route: 048
     Dates: start: 20041001
  6. THEOPHYLLINE [Suspect]
     Indication: PULMONARY CONGESTION
     Dosage: 600 MG QDAY PO
     Route: 048
     Dates: start: 20041001
  7. AVANDIA [Concomitant]
  8. SINGULAIR ^DIECKMANN^ [Concomitant]
  9. MULIVITAMIN ^FORTEX^ [Concomitant]
  10. ZYRTEC [Concomitant]
  11. ALTACE [Concomitant]
  12. ^VYTRBIN^ [Concomitant]
  13. ^SPIRVIA^ [Concomitant]
  14. FORADIL [Concomitant]

REACTIONS (3)
  - CONVULSION [None]
  - DRUG INTERACTION [None]
  - LOSS OF CONSCIOUSNESS [None]
